FAERS Safety Report 8563000-6 (Version None)
Quarter: 2012Q3

REPORT INFORMATION
  Report Type: 
  Country: None (occurrence: None)
  Receive Date: 20120802
  Receipt Date: 20120721
  Transmission Date: 20120928
  Serious: No
  Sender: FDA-Public Use
  Company Number: US-AMGEN-USASP2012031184

PATIENT
  Age: 53 Year
  Sex: Female
  Weight: 88.435 kg

DRUGS (1)
  1. ENBREL [Suspect]
     Indication: RHEUMATOID ARTHRITIS
     Dosage: 50 MG, QWK
     Dates: start: 20060901

REACTIONS (3)
  - BRONCHITIS [None]
  - RESPIRATORY TRACT CONGESTION [None]
  - COUGH [None]
